FAERS Safety Report 19419459 (Version 1)
Quarter: 2021Q2

REPORT INFORMATION
  Report Type: Spontaneous
  Country: US (occurrence: US)
  Receive Date: 20210615
  Receipt Date: 20210615
  Transmission Date: 20210717
  Serious: Yes (Other)
  Sender: FDA-Public Use
  Company Number: NVSC2021US127929

PATIENT
  Sex: Male

DRUGS (3)
  1. BUMEX [Concomitant]
     Active Substance: BUMETANIDE
     Indication: PRODUCT USED FOR UNKNOWN INDICATION
     Dosage: UNK
     Route: 065
  2. ENTRESTO [Suspect]
     Active Substance: SACUBITRIL\VALSARTAN
     Indication: LEFT VENTRICULAR FAILURE
     Dosage: 49.51 MG, BID (49/51MG)
     Route: 048
  3. BUMEX [Concomitant]
     Active Substance: BUMETANIDE
     Dosage: REDUCED DOSE
     Route: 065

REACTIONS (1)
  - Hyperkalaemia [Recovered/Resolved]
